FAERS Safety Report 5023523-3 (Version None)
Quarter: 2006Q2

REPORT INFORMATION
  Report Type: 
  Country: None (occurrence: None)
  Receive Date: 20060612
  Receipt Date: 20060526
  Transmission Date: 20061013
  Serious: Yes (Life-Threatening, Hospitalization)
  Sender: FDA-Public Use
  Company Number: JP-JPN-A200601736

PATIENT
  Age: 56 Year
  Sex: Female
  Weight: 92 kg

DRUGS (9)
  1. ZANTAC [Suspect]
     Indication: PREMEDICATION
     Dosage: 50MG PER DAY
     Route: 042
     Dates: start: 20060108
  2. SEROTONE [Suspect]
     Dosage: 1U PER DAY
     Route: 042
     Dates: start: 20060108
  3. RENIVACE [Suspect]
     Dosage: 5MG PER DAY
     Route: 048
     Dates: start: 20060207
  4. ARTIST [Suspect]
     Dosage: 10MG PER DAY
     Route: 048
     Dates: start: 20051011
  5. CIBENOL [Suspect]
     Dosage: 50MG TWICE PER DAY
     Route: 048
     Dates: start: 20051011
  6. SEISHOKU [Concomitant]
     Dosage: 100ML PER DAY
     Route: 042
     Dates: start: 20060108
  7. DECADRON [Concomitant]
     Dosage: 16MG PER DAY
     Route: 042
     Dates: start: 20060108
  8. RESTAMIN [Concomitant]
     Dosage: 5U PER DAY
     Route: 048
     Dates: start: 20060108
  9. WARFARIN SODIUM [Concomitant]
     Indication: THROMBOSIS PROPHYLAXIS
     Dosage: 2.5MG PER DAY
     Route: 048
     Dates: start: 20031218

REACTIONS (6)
  - CARDIAC ARREST [None]
  - DYSPNOEA [None]
  - FEELING ABNORMAL [None]
  - LOSS OF CONSCIOUSNESS [None]
  - PRURITUS GENERALISED [None]
  - SHOCK [None]
